FAERS Safety Report 7245712-X (Version None)
Quarter: 2011Q1

REPORT INFORMATION
  Report Type: 
  Country: None (occurrence: None)
  Receive Date: 20110126
  Receipt Date: 20110113
  Transmission Date: 20110831
  Serious: Yes (Death, Hospitalization)
  Sender: FDA-Public Use
  Company Number: US-ACTELION-A-NJ2010-42856

PATIENT

DRUGS (2)
  1. CALCIUM CHANNEL BLOCKERS [Concomitant]
  2. BOSENTAN TABLET UNKNOWN US MG [Suspect]
     Indication: PULMONARY ARTERIAL HYPERTENSION
     Dosage: UNK
     Route: 048
     Dates: start: 20100402

REACTIONS (6)
  - PULMONARY ARTERIAL HYPERTENSION [None]
  - DEATH [None]
  - SYSTEMIC LUPUS ERYTHEMATOSUS [None]
  - RENAL FAILURE [None]
  - RHEUMATOID ARTHRITIS [None]
  - MECHANICAL VENTILATION [None]
